FAERS Safety Report 9084737 (Version 1)
Quarter: 2013Q1

REPORT INFORMATION
  Report Type: Report from Study
  Country: US (occurrence: US)
  Receive Date: 20130131
  Receipt Date: 20130131
  Transmission Date: 20140127
  Serious: No
  Sender: FDA-Public Use
  Company Number: US-ABBOTT-12P-163-1014278-00

PATIENT
  Age: 33 Year
  Sex: Female

DRUGS (6)
  1. HUMIRA [Suspect]
     Indication: PSORIASIS
     Dates: start: 20121109, end: 20121109
  2. HUMIRA [Suspect]
     Dates: start: 20121116
  3. ABILIFY [Concomitant]
     Indication: BIPOLAR DISORDER
  4. ZOLOFT [Concomitant]
     Indication: DEPRESSION
  5. TRAMADOL [Concomitant]
     Indication: ARTHRITIS
  6. FOLIC ACID [Concomitant]
     Indication: PRODUCT USED FOR UNKNOWN INDICATION

REACTIONS (2)
  - Injection site erythema [Recovering/Resolving]
  - Injection site pruritus [Recovering/Resolving]
